FAERS Safety Report 6393941-X (Version None)
Quarter: 2009Q4

REPORT INFORMATION
  Report Type: 
  Country: None (occurrence: None)
  Receive Date: 20091008
  Receipt Date: 20090925
  Transmission Date: 20100525
  Serious: Yes (Other)
  Sender: FDA-Public Use
  Company Number: US-PFIZER INC-2009253540

PATIENT
  Sex: Female

DRUGS (1)
  1. ZARONTIN [Suspect]
     Indication: PETIT MAL EPILEPSY

REACTIONS (3)
  - GENERALISED ANXIETY DISORDER [None]
  - MOOD ALTERED [None]
  - TIC [None]
